FAERS Safety Report 13017086 (Version 2)
Quarter: 2019Q2

REPORT INFORMATION
  Report Type: Spontaneous
  Country: FR (occurrence: FR)
  Receive Date: 20161212
  Receipt Date: 20190628
  Transmission Date: 20190711
  Serious: Yes (Death, Other)
  Sender: FDA-Public Use
  Company Number: FR-BAXTER-2016BAX062186

PATIENT
  Age: 8 Year
  Sex: Female

DRUGS (38)
  1. HOLOXAN 2000 MG, POUDRE POUR USAGE PARENT?RAL [Suspect]
     Active Substance: IFOSFAMIDE
     Dosage: CURE N5: D1
     Route: 065
     Dates: start: 20160512
  2. HOLOXAN 2000 MG, POUDRE POUR USAGE PARENT?RAL [Suspect]
     Active Substance: IFOSFAMIDE
     Dosage: CURE N6: D1
     Route: 065
     Dates: start: 20160604
  3. HOLOXAN 2000 MG, POUDRE POUR USAGE PARENT?RAL [Suspect]
     Active Substance: IFOSFAMIDE
     Dosage: CURE N7: D1
     Route: 065
     Dates: start: 20160625
  4. MORPHINE [Suspect]
     Active Substance: MORPHINE
     Indication: HEADACHE
     Route: 065
     Dates: start: 20161107
  5. HOLOXAN 2000 MG, POUDRE POUR USAGE PARENT?RAL [Suspect]
     Active Substance: IFOSFAMIDE
     Dosage: CURE N2: D1
     Route: 065
     Dates: start: 20160309
  6. ENDOXAN 1000 MG, POUDRE POUR SOLUTIONINJECTABLE [Suspect]
     Active Substance: CYCLOPHOSPHAMIDE
     Indication: EMBRYONAL RHABDOMYOSARCOMA
     Route: 065
     Dates: start: 20161006
  7. VINCRISTINE [Suspect]
     Active Substance: VINCRISTINE
     Dosage: CURE N?3: D1
     Route: 065
     Dates: start: 20160330
  8. VINCRISTINE [Suspect]
     Active Substance: VINCRISTINE
     Dosage: CURE N?8: D1
     Route: 065
     Dates: start: 20160718
  9. ACTINOMYCINE [DACTINOMYCIN] [Suspect]
     Active Substance: DACTINOMYCIN
     Dosage: CURE OF ACTINOMYCINE N?2
     Route: 065
     Dates: start: 20160920
  10. HOLOXAN 2000 MG, POUDRE POUR USAGE PARENT?RAL [Suspect]
     Active Substance: IFOSFAMIDE
     Dosage: CURE N3D1
     Route: 065
     Dates: start: 20160330
  11. NAVELBINE [Suspect]
     Active Substance: VINORELBINE TARTRATE
     Indication: EMBRYONAL RHABDOMYOSARCOMA
     Dosage: CYCLE 1 DAY 1
     Route: 065
     Dates: start: 20161006, end: 20161021
  12. VINCRISTINE [Suspect]
     Active Substance: VINCRISTINE
     Dosage: CURE N?4: D1
     Route: 065
     Dates: start: 20160420
  13. VINCRISTINE [Suspect]
     Active Substance: VINCRISTINE
     Dosage: CURE N?9: D1
     Route: 065
     Dates: start: 20160816
  14. ACTINOMYCINE [DACTINOMYCIN] [Suspect]
     Active Substance: DACTINOMYCIN
     Dosage: CURE N?8: D1
     Route: 065
     Dates: start: 20160718
  15. HOLOXAN 2000 MG, POUDRE POUR USAGE PARENT?RAL [Suspect]
     Active Substance: IFOSFAMIDE
     Dosage: CURE N4: D1
     Route: 065
     Dates: start: 20160420
  16. VINCRISTINE [Suspect]
     Active Substance: VINCRISTINE
     Dosage: CURE N?7: D1
     Route: 065
     Dates: start: 20160625
  17. ACTINOMYCINE [DACTINOMYCIN] [Suspect]
     Active Substance: DACTINOMYCIN
     Indication: EMBRYONAL RHABDOMYOSARCOMA
     Dosage: CURE N?1: D1
     Route: 065
     Dates: start: 20160217
  18. RIVOTRIL [Concomitant]
     Active Substance: CLONAZEPAM
     Indication: PRODUCT USED FOR UNKNOWN INDICATION
     Dosage: IF NEEDED
     Route: 065
  19. HOLOXAN 2000 MG, POUDRE POUR USAGE PARENT?RAL [Suspect]
     Active Substance: IFOSFAMIDE
     Indication: EMBRYONAL RHABDOMYOSARCOMA
     Dosage: CURE N1: D1
     Route: 065
     Dates: start: 20160217
  20. ENDOXAN 1000 MG, POUDRE POUR SOLUTIONINJECTABLE [Suspect]
     Active Substance: CYCLOPHOSPHAMIDE
     Dosage: AT DINNER
     Route: 065
     Dates: start: 20161105
  21. NAVELBINE [Suspect]
     Active Substance: VINORELBINE TARTRATE
     Indication: OFF LABEL USE
  22. VINCRISTINE [Suspect]
     Active Substance: VINCRISTINE
     Dosage: CURE N?2: D1
     Route: 065
     Dates: start: 20160309
  23. ACTINOMYCINE [DACTINOMYCIN] [Suspect]
     Active Substance: DACTINOMYCIN
     Dosage: CURE N?4: D1
     Route: 065
     Dates: start: 20160420
  24. ZOPHREN [Concomitant]
     Active Substance: ONDANSETRON
     Indication: PRODUCT USED FOR UNKNOWN INDICATION
     Route: 065
  25. HOLOXAN 2000 MG, POUDRE POUR USAGE PARENT?RAL [Suspect]
     Active Substance: IFOSFAMIDE
     Dosage: CURE N9: D1
     Route: 065
     Dates: start: 20160816
  26. VINCRISTINE [Suspect]
     Active Substance: VINCRISTINE
     Indication: EMBRYONAL RHABDOMYOSARCOMA
     Dosage: CURE N?1: D1
     Route: 065
     Dates: start: 20160217
  27. ACTINOMYCINE [DACTINOMYCIN] [Suspect]
     Active Substance: DACTINOMYCIN
     Dosage: CURE N?5: D1
     Route: 065
     Dates: start: 20160512
  28. HOLOXAN 2000 MG, POUDRE POUR USAGE PARENT?RAL [Suspect]
     Active Substance: IFOSFAMIDE
     Dosage: CURE N8: D1
     Route: 065
     Dates: start: 20160718
  29. ENDOXAN 1000 MG, POUDRE POUR SOLUTIONINJECTABLE [Suspect]
     Active Substance: CYCLOPHOSPHAMIDE
     Dosage: AT DINNER
     Route: 065
     Dates: start: 20161106
  30. ACTINOMYCINE [DACTINOMYCIN] [Suspect]
     Active Substance: DACTINOMYCIN
     Dosage: CURE N?3: D1
     Route: 065
     Dates: start: 20160330
  31. ACTINOMYCINE [DACTINOMYCIN] [Suspect]
     Active Substance: DACTINOMYCIN
     Dosage: CURE N?9: D1
     Route: 065
     Dates: start: 20160816
  32. PARACETAMOL [Concomitant]
     Active Substance: ACETAMINOPHEN
     Indication: PRODUCT USED FOR UNKNOWN INDICATION
     Dosage: IF NEEDED
     Route: 065
  33. ENDOXAN 1000 MG, POUDRE POUR SOLUTIONINJECTABLE [Suspect]
     Active Substance: CYCLOPHOSPHAMIDE
     Indication: OFF LABEL USE
     Dosage: AT DINNER
     Route: 065
     Dates: start: 20161104
  34. VINCRISTINE [Suspect]
     Active Substance: VINCRISTINE
     Dosage: CURE N?5: D1
     Route: 065
     Dates: start: 20160512
  35. VINCRISTINE [Suspect]
     Active Substance: VINCRISTINE
     Dosage: CURE N?6: D1
     Route: 065
     Dates: start: 20160604
  36. ACTINOMYCINE [DACTINOMYCIN] [Suspect]
     Active Substance: DACTINOMYCIN
     Dosage: CURE N?2: D1
     Route: 065
     Dates: start: 20160309
  37. ACTINOMYCINE [DACTINOMYCIN] [Suspect]
     Active Substance: DACTINOMYCIN
     Dosage: CURE OF ACTINOMYCINE N?1
     Route: 065
     Dates: start: 20160906
  38. MICROPAKINE [Concomitant]
     Active Substance: VALPROATE SODIUM
     Indication: PRODUCT USED FOR UNKNOWN INDICATION
     Dosage: PROLONGED RELEASED
     Route: 065

REACTIONS (12)
  - Arrhythmia [Fatal]
  - Epistaxis [Unknown]
  - Metastases to meninges [Unknown]
  - Metastases to meninges [Unknown]
  - Meningitis noninfective [Unknown]
  - Vomiting [Fatal]
  - Dyspnoea [Unknown]
  - Off label use [Unknown]
  - Muscle spasms [Unknown]
  - Headache [Fatal]
  - Epilepsy [Fatal]
  - Bradypnoea [Fatal]

NARRATIVE: CASE EVENT DATE: 20160801
